FAERS Safety Report 7342124-5 (Version None)
Quarter: 2011Q1

REPORT INFORMATION
  Report Type: 
  Country: None (occurrence: None)
  Receive Date: 20110309
  Receipt Date: 20110307
  Transmission Date: 20110831
  Serious: Yes (Death)
  Sender: FDA-Public Use
  Company Number: ES-MERCK-1103ESP00003

PATIENT
  Age: 91 Year
  Sex: Male

DRUGS (2)
  1. INVANZ [Suspect]
     Indication: PNEUMONIA
     Route: 042
     Dates: start: 20080131, end: 20080202
  2. AMOXICILLIN AND CLAVULANATE POTASSIUM [Concomitant]
     Indication: PNEUMONIA
     Route: 042
     Dates: start: 20080127, end: 20080131

REACTIONS (2)
  - PRE-EXISTING DISEASE [None]
  - NO THERAPEUTIC RESPONSE [None]
